FAERS Safety Report 10462022 (Version 13)
Quarter: 2015Q3

REPORT INFORMATION
  Report Type: Report from Study
  Country: FR (occurrence: FR)
  Receive Date: 20140918
  Receipt Date: 20150703
  Transmission Date: 20151125
  Serious: Yes (Hospitalization)
  Sender: FDA-Public Use
  Company Number: FR-009507513-1408FRA004772

PATIENT
  Age: 67 Year
  Sex: Male
  Weight: 100 kg

DRUGS (16)
  1. PEMBROLIZUMAB. [Suspect]
     Active Substance: PEMBROLIZUMAB
     Dosage: 10 MG/KG, Q2W
     Route: 042
     Dates: start: 20140602, end: 20140602
  2. PEMBROLIZUMAB. [Suspect]
     Active Substance: PEMBROLIZUMAB
     Dosage: 10 MG/KG, Q2W
     Route: 042
     Dates: start: 20140616, end: 20140616
  3. VASCULAR ENDOTHELIAL GROWTH FACTOR INHIBITOR (UNSPECIFIED) [Concomitant]
     Indication: RETINAL VEIN OCCLUSION
     Dosage: 1 DF, FREQUENCY:OTHER, FORMULATION:AMPULE
     Route: 050
     Dates: start: 201312
  4. AZOPT [Concomitant]
     Active Substance: BRINZOLAMIDE
     Indication: RETINAL VEIN OCCLUSION
     Dosage: TOTAL DAILY DOSE: 0.05 ML, QD
     Route: 047
     Dates: start: 201012
  5. SMECTA [Concomitant]
     Active Substance: MONTMORILLONITE
     Indication: DIARRHOEA
     Dosage: PRN
     Route: 048
     Dates: start: 20140519, end: 20140529
  6. DEXERYL CREAM [Concomitant]
     Active Substance: GLYCERIN\PARAFFIN
     Indication: DRY SKIN
     Dosage: DAILY DOSE 1 APPLICATION, PRN
     Route: 003
     Dates: start: 20140506, end: 20140619
  7. PEMBROLIZUMAB. [Suspect]
     Active Substance: PEMBROLIZUMAB
     Dosage: 10 MG/KG, Q2W
     Route: 042
     Dates: start: 20140701, end: 20140701
  8. COAPROVEL [Concomitant]
     Active Substance: HYDROCHLOROTHIAZIDE\IRBESARTAN
     Indication: HYPERTENSION
     Dosage: 150 MG, QD
     Route: 048
     Dates: start: 201112
  9. TIORFAN [Concomitant]
     Active Substance: RACECADOTRIL
     Indication: DIARRHOEA
     Dosage: UNK, PRN
     Route: 048
     Dates: start: 20140519, end: 20140529
  10. PEMBROLIZUMAB. [Suspect]
     Active Substance: PEMBROLIZUMAB
     Indication: MALIGNANT MELANOMA
     Dosage: 10 MG/KG, Q2W
     Route: 042
     Dates: start: 20140130, end: 20140506
  11. ACETAMINOPHEN. [Concomitant]
     Active Substance: ACETAMINOPHEN
     Indication: ARTHRALGIA
     Dosage: TOTAL DAILY DOSE: 3 G DAILY, PRN
     Route: 048
     Dates: start: 201402
  12. METEOSPASMYL (ALVERINE CITRATE (+) SIMETHICONE) [Concomitant]
     Indication: ABDOMINAL PAIN
     Dosage: TOTAL DAILY DOSE: 3 TABLET, TID
     Route: 048
     Dates: start: 20140602, end: 201407
  13. INEXIUM (ESOMEPRAZOLE MAGNESIUM) [Concomitant]
     Active Substance: ESOMEPRAZOLE MAGNESIUM
     Indication: OESOPHAGITIS
     Dosage: 40 MG, QD
     Route: 048
     Dates: start: 201012
  14. PRAVADUAL [Concomitant]
     Active Substance: ASPIRIN\PRAVASTATIN
     Indication: DYSLIPIDAEMIA
     Dosage: 40 MG, QD
     Route: 048
     Dates: start: 201012
  15. KALEORID [Concomitant]
     Active Substance: POTASSIUM CHLORIDE
     Indication: HYPOKALAEMIA
     Dosage: 1 TABLET, BID
     Route: 048
     Dates: start: 201406, end: 20140811
  16. IMODIUM [Concomitant]
     Active Substance: LOPERAMIDE HYDROCHLORIDE
     Indication: DIARRHOEA
     Dosage: UNK, PRN
     Route: 048
     Dates: start: 20140506, end: 20140529

REACTIONS (3)
  - Colitis [Not Recovered/Not Resolved]
  - Hypokalaemia [Recovered/Resolved]
  - Colitis [Recovered/Resolved]

NARRATIVE: CASE EVENT DATE: 20140603
